FAERS Safety Report 5140221-6 (Version None)
Quarter: 2006Q4

REPORT INFORMATION
  Report Type: 
  Country: None (occurrence: None)
  Receive Date: 20061031
  Receipt Date: 20061019
  Transmission Date: 20070319
  Serious: Yes (Other)
  Sender: FDA-Public Use
  Company Number: PHBS2006JP16453

PATIENT
  Age: 71 Year
  Sex: Male

DRUGS (1)
  1. CIBACEN [Suspect]
     Dosage: 5 MG/DAY
     Route: 048
     Dates: start: 19980601, end: 20040501

REACTIONS (1)
  - RHABDOMYOLYSIS [None]
